FAERS Safety Report 26131216 (Version 1)
Quarter: 2025Q4

REPORT INFORMATION
  Report Type: Spontaneous
  Country: US (occurrence: None)
  Receive Date: 20251207
  Receipt Date: 20251207
  Transmission Date: 20260117
  Serious: Yes (Other)
  Sender: FDA-CTU
  Company Number: None

PATIENT
  Age: 51 Year
  Sex: Female
  Weight: 78.75 kg

DRUGS (9)
  1. TIRZEPATIDE [Suspect]
     Active Substance: TIRZEPATIDE
     Indication: Weight decreased
     Route: 058
  2. TIRZEPATIDE [Suspect]
     Active Substance: TIRZEPATIDE
     Indication: Type 2 diabetes mellitus
  3. SEMAGLUTIDE [Suspect]
     Active Substance: SEMAGLUTIDE
  4. PROTONIX [Concomitant]
     Active Substance: PANTOPRAZOLE SODIUM
  5. LEVOTHYROXINE [Concomitant]
     Active Substance: LEVOTHYROXINE
  6. METFORMIN [Concomitant]
     Active Substance: METFORMIN HYDROCHLORIDE
  7. TIRZEPATIDE [Concomitant]
     Active Substance: TIRZEPATIDE
  8. ALDACTONE [Concomitant]
     Active Substance: SPIRONOLACTONE
  9. VYVANSE [Concomitant]
     Active Substance: LISDEXAMFETAMINE DIMESYLATE

REACTIONS (8)
  - Fatigue [None]
  - Depression [None]
  - Loss of employment [None]
  - Blood pressure increased [None]
  - Screaming [None]
  - Brain fog [None]
  - Disturbance in attention [None]
  - Goitre [None]

NARRATIVE: CASE EVENT DATE: 20250829
